FAERS Safety Report 6055740-8 (Version None)
Quarter: 2009Q1

REPORT INFORMATION
  Report Type: 
  Country: None (occurrence: None)
  Receive Date: 20090128
  Receipt Date: 20090128
  Transmission Date: 20090719
  Serious: Yes (Other)
  Sender: FDA-Public Use
  Company Number: AU-SANOFI-SYNTHELABO-A01200900511

PATIENT
  Sex: Male

DRUGS (5)
  1. ASPIRIN [Concomitant]
     Indication: DRUG USE FOR UNKNOWN INDICATION
     Dosage: UNK
     Route: 065
  2. PLAVIX [Suspect]
     Indication: TRANSIENT ISCHAEMIC ATTACK
     Route: 048
     Dates: start: 20070101
  3. PLAVIX [Suspect]
     Indication: CAROTID ARTERY STENT INSERTION
     Route: 048
     Dates: start: 20070101
  4. ASPIRIN [Concomitant]
     Route: 048
     Dates: start: 20060101
  5. AVAPRO [Concomitant]
     Indication: HYPERTENSION
     Route: 048
     Dates: start: 20060101

REACTIONS (3)
  - ANAEMIA [None]
  - MELAENA [None]
  - RENAL ARTERY OCCLUSION [None]
